FAERS Safety Report 25687589 (Version 2)
Quarter: 2025Q3

REPORT INFORMATION
  Report Type: Spontaneous
  Country: CA (occurrence: CA)
  Receive Date: 20250817
  Receipt Date: 20250923
  Transmission Date: 20251020
  Serious: Yes (Other)
  Sender: SANOFI AVENTIS
  Company Number: CA-SA-2025SA234287

PATIENT
  Age: 61 Year
  Sex: Female
  Weight: 59 kg

DRUGS (5)
  1. INSULIN ASPART [Suspect]
     Active Substance: INSULIN ASPART
     Indication: Type 1 diabetes mellitus
     Dosage: 7 U, TID
     Route: 058
     Dates: start: 202409, end: 202410
  2. KIRSTY [Suspect]
     Active Substance: INSULIN ASPART-XJHZ
     Indication: Type 1 diabetes mellitus
     Dosage: 7 U, TID
     Route: 058
     Dates: start: 20241201
  3. TRESIBA [Concomitant]
     Active Substance: INSULIN DEGLUDEC
  4. RAMIPRIL [Concomitant]
     Active Substance: RAMIPRIL
  5. FLUVASTATIN [Concomitant]
     Active Substance: FLUVASTATIN SODIUM
     Dates: start: 202408

REACTIONS (1)
  - Rash pruritic [Not Recovered/Not Resolved]

NARRATIVE: CASE EVENT DATE: 20240901
